FAERS Safety Report 7094705-4 (Version None)
Quarter: 2010Q4

REPORT INFORMATION
  Report Type: 
  Country: None (occurrence: None)
  Receive Date: 20101110
  Receipt Date: 20080709
  Transmission Date: 20110411
  Serious: No
  Sender: FDA-Public Use
  Company Number: US-KINGPHARMUSA00001-K200800825

PATIENT
  Sex: Male

DRUGS (3)
  1. SKELAXIN [Suspect]
     Indication: BACK PAIN
     Route: 048
     Dates: start: 20080701, end: 20080701
  2. IBUPROFEN [Concomitant]
     Indication: PAIN
     Route: 048
  3. MEDROL [Concomitant]

REACTIONS (2)
  - SEDATION [None]
  - SOMNOLENCE [None]
